FAERS Safety Report 20475711 (Version 1)
Quarter: 2022Q1

REPORT INFORMATION
  Report Type: Spontaneous
  Country: US (occurrence: US)
  Receive Date: 20220215
  Receipt Date: 20220215
  Transmission Date: 20220423
  Serious: Yes (Other)
  Sender: FDA-Public Use
  Company Number: US-JNJFOC-20220231493

PATIENT
  Age: 3 Decade
  Sex: Female
  Weight: 56.750 kg

DRUGS (1)
  1. REMICADE [Suspect]
     Active Substance: INFLIXIMAB
     Indication: Colitis ulcerative
     Route: 042
     Dates: start: 2019, end: 2020

REACTIONS (3)
  - Anaphylactic shock [Unknown]
  - Infusion related reaction [Unknown]
  - Hypersensitivity [Unknown]
